FAERS Safety Report 14778960 (Version 1)
Quarter: 2018Q2

REPORT INFORMATION
  Report Type: Spontaneous
  Country: NO (occurrence: NO)
  Receive Date: 20180419
  Receipt Date: 20180419
  Transmission Date: 20180711
  Serious: Yes (Other)
  Sender: FDA-Public Use
  Company Number: NO-JNJFOC-20180412532

PATIENT

DRUGS (1)
  1. METHYLPHENIDATE HYDROCHLORIDE. [Suspect]
     Active Substance: METHYLPHENIDATE HYDROCHLORIDE
     Indication: PRODUCT USED FOR UNKNOWN INDICATION
     Route: 065

REACTIONS (27)
  - Intentional product misuse [Unknown]
  - Drug interaction [Unknown]
  - Dizziness [Unknown]
  - Insomnia [Unknown]
  - Dyskinesia [Unknown]
  - Fatigue [Unknown]
  - Haematemesis [Unknown]
  - Feeling abnormal [Unknown]
  - Hypertension [Unknown]
  - Diarrhoea [Unknown]
  - Depression [Unknown]
  - Weight decreased [Unknown]
  - Cerebral infarction [Unknown]
  - Pruritus [Unknown]
  - Headache [Unknown]
  - Hallucination [Unknown]
  - Nausea [Unknown]
  - Decreased appetite [Unknown]
  - Heart rate increased [Unknown]
  - Vomiting [Unknown]
  - Palpitations [Unknown]
  - Intentional self-injury [Unknown]
  - Aggression [Unknown]
  - Suicidal ideation [Unknown]
  - Growth retardation [Unknown]
  - Attention deficit/hyperactivity disorder [Unknown]
  - Anxiety [Unknown]
